FAERS Safety Report 5249322-5 (Version None)
Quarter: 2007Q1

REPORT INFORMATION
  Report Type: 
  Country: None (occurrence: None)
  Receive Date: 20070223
  Receipt Date: 20070212
  Transmission Date: 20070707
  Serious: Yes (Life-Threatening)
  Sender: FDA-Public Use
  Company Number: 2007-154406-NL

PATIENT
  Age: 16 Year
  Sex: Female

DRUGS (1)
  1. NUVARING [Suspect]
     Dosage: DF

REACTIONS (10)
  - ACUTE RESPIRATORY DISTRESS SYNDROME [None]
  - ARTHRALGIA [None]
  - BACTERIA BLOOD IDENTIFIED [None]
  - BETA HAEMOLYTIC STREPTOCOCCAL INFECTION [None]
  - NECK PAIN [None]
  - OOPHORITIS [None]
  - PAIN [None]
  - PERITONITIS [None]
  - SALPINGITIS [None]
  - TOXIC SHOCK SYNDROME [None]
